FAERS Safety Report 6434243-2 (Version None)
Quarter: 2009Q4

REPORT INFORMATION
  Report Type: 
  Country: None (occurrence: None)
  Receive Date: 20091110
  Receipt Date: 20090626
  Transmission Date: 20100525
  Serious: No
  Sender: FDA-Public Use
  Company Number: US-ASTRAZENECA-2009SE10156

PATIENT
  Sex: Male

DRUGS (5)
  1. PRILOSEC OTC [Suspect]
     Indication: GASTROOESOPHAGEAL REFLUX DISEASE
     Dosage: 1 TABLET, 1 /DAY
     Route: 048
  2. PRILOSEC OTC [Suspect]
     Dosage: 2 TABLET, 1 /DAY
     Route: 048
  3. ANTIHYPERTENSIVES [Concomitant]
     Indication: HYPERTENSION
     Dosage: UNKNOWN
  4. STATIN [Concomitant]
  5. ASPIRIN [Concomitant]
     Dosage: UNKNOWN

REACTIONS (1)
  - ARTHRALGIA [None]
